FAERS Safety Report 18089214 (Version 2)
Quarter: 2020Q3

REPORT INFORMATION
  Report Type: Spontaneous
  Country: IT (occurrence: IT)
  Receive Date: 20200729
  Receipt Date: 20200928
  Transmission Date: 20201103
  Serious: Yes (Disabling)
  Sender: FDA-Public Use
  Company Number: IT-009507513-2007ITA010886

PATIENT
  Age: 30 Year
  Sex: Male
  Weight: 69 kg

DRUGS (2)
  1. PROPECIA [Suspect]
     Active Substance: FINASTERIDE
     Indication: ALOPECIA
     Dosage: PROPECIA 1 MG WAS PRESCRIBED, TO BE TAKEN AT A DOSAGE OF ? TABLET PER DAY.
     Route: 048
     Dates: start: 201701, end: 2017
  2. PROPECIA [Suspect]
     Active Substance: FINASTERIDE
     Dosage: PROPECIA 1 MG WAS PRESCRIBED, TO BE TAKEN AT A DOSAGE OF ? TABLET PER DAY.
     Route: 048
     Dates: start: 2017

REACTIONS (3)
  - Product prescribing issue [Unknown]
  - Post 5-alpha-reductase inhibitor syndrome [Not Recovered/Not Resolved]
  - Gastrointestinal disorder [Unknown]

NARRATIVE: CASE EVENT DATE: 2017
